FAERS Safety Report 13851223 (Version 2)
Quarter: 2017Q4

REPORT INFORMATION
  Report Type: Spontaneous
  Country: PL (occurrence: PL)
  Receive Date: 20170809
  Receipt Date: 20171030
  Transmission Date: 20180320
  Serious: Yes (Hospitalization)
  Sender: FDA-Public Use
  Company Number: PL-CELLTRION INC.-2017PL010359

PATIENT

DRUGS (9)
  1. REMSIMA [Suspect]
     Active Substance: INFLIXIMAB
     Indication: COLITIS ULCERATIVE
     Dosage: 4 AMP (400MG)
     Route: 042
     Dates: start: 20160819, end: 20160819
  2. REMSIMA [Suspect]
     Active Substance: INFLIXIMAB
     Dosage: 4 AMP (400MG)
     Route: 042
  3. DICOFLOR                           /07496101/ [Concomitant]
     Dosage: 1 X 1
  4. ACIDUM FOLICUM [Concomitant]
     Active Substance: FOLIC ACID
     Dosage: 5 MG
  5. REMSIMA [Suspect]
     Active Substance: INFLIXIMAB
     Dosage: 4 AMP (400MG)
     Route: 042
  6. REMSIMA [Suspect]
     Active Substance: INFLIXIMAB
     Dosage: 4 AMP (400MG)
     Route: 042
     Dates: start: 20170712, end: 20170712
  7. ASAMAX [Concomitant]
     Active Substance: MESALAMINE
     Dosage: 3 X 2 TABS (A 500 MG)
  8. DEBUTIR [Concomitant]
     Dosage: 2 X 1
  9. REMSIMA [Suspect]
     Active Substance: INFLIXIMAB
     Dosage: 4 AMP (400MG)
     Route: 042

REACTIONS (15)
  - Malaise [Recovered/Resolved]
  - Conjunctival haemorrhage [Recovered/Resolved]
  - Mood altered [Recovered/Resolved]
  - Palpitations [Recovered/Resolved]
  - Haematochezia [Recovered/Resolved]
  - Frequent bowel movements [Recovered/Resolved]
  - Muscle spasms [Recovered/Resolved]
  - Pyrexia [Recovered/Resolved]
  - Rash [Recovered/Resolved]
  - Decreased appetite [Recovered/Resolved]
  - Hypertension [Recovered/Resolved]
  - Asthenia [Recovered/Resolved]
  - Mucous stools [Recovered/Resolved]
  - Arthralgia [Recovered/Resolved]
  - Hyperhidrosis [Recovered/Resolved]

NARRATIVE: CASE EVENT DATE: 20170720
